FAERS Safety Report 6903428-0 (Version None)
Quarter: 2010Q3

REPORT INFORMATION
  Report Type: 
  Country: None (occurrence: None)
  Receive Date: 20100803
  Receipt Date: 20081007
  Transmission Date: 20110219
  Serious: Yes (Other)
  Sender: FDA-Public Use
  Company Number: US-PFIZER INC-2008084465

PATIENT
  Sex: Male
  Weight: 72.6 kg

DRUGS (3)
  1. PREGABALIN [Suspect]
     Indication: NEURALGIA
     Dates: start: 20080901
  2. COUMADIN [Concomitant]
  3. VICODIN [Concomitant]

REACTIONS (3)
  - EPIDIDYMITIS [None]
  - ERECTILE DYSFUNCTION [None]
  - LOSS OF LIBIDO [None]
